FAERS Safety Report 10102027 (Version 2)
Quarter: 2014Q2

REPORT INFORMATION
  Report Type: Spontaneous
  Country: US (occurrence: US)
  Receive Date: 20140424
  Receipt Date: 20140424
  Transmission Date: 20141212
  Serious: Yes (Hospitalization)
  Sender: FDA-Public Use
  Company Number: US-MYLANLABS-2014S1006094

PATIENT
  Age: 82 Year
  Sex: Male
  Weight: 93.44 kg

DRUGS (6)
  1. LEVOTHYROXINE SODIUM TABLETS, USP [Suspect]
     Indication: THYROID HORMONE REPLACEMENT THERAPY
     Route: 048
  2. LEVOTHYROXINE SODIUM TABLETS, USP [Suspect]
     Indication: THYROID HORMONE REPLACEMENT THERAPY
     Route: 048
  3. HYDROCORTISONE [Concomitant]
     Route: 048
  4. TESTOSTERONE [Concomitant]
  5. AMLODIPINE [Concomitant]
     Indication: HYPERTENSION
     Route: 048
  6. LISINOPRIL [Concomitant]
     Indication: HYPERTENSION
     Route: 048

REACTIONS (5)
  - Myocardial infarction [Recovered/Resolved]
  - Gait disturbance [Not Recovered/Not Resolved]
  - Asthenia [Not Recovered/Not Resolved]
  - Fatigue [Not Recovered/Not Resolved]
  - Myalgia [Recovering/Resolving]
